FAERS Safety Report 24167497 (Version 1)
Quarter: 2024Q3

REPORT INFORMATION
  Report Type: Spontaneous
  Country: US (occurrence: US)
  Receive Date: 20240802
  Receipt Date: 20240802
  Transmission Date: 20241016
  Serious: No
  Sender: ODIN PHARMACEUTICALS
  Company Number: USA--2023-US-001603

PATIENT
  Age: 77 Year
  Sex: Female

DRUGS (3)
  1. PILOCARPINE HYDROCHLORIDE [Suspect]
     Active Substance: PILOCARPINE HYDROCHLORIDE
     Dates: start: 20231120, end: 20231124
  2. PREDNISONE [Concomitant]
     Active Substance: PREDNISONE
     Dosage: BOTH EYES
  3. DORZOLAMIDE [Concomitant]
     Active Substance: DORZOLAMIDE

REACTIONS (1)
  - Eye pain [Recovered/Resolved]

NARRATIVE: CASE EVENT DATE: 20231120
